FAERS Safety Report 8819518 (Version 2)
Quarter: 2012Q4

REPORT INFORMATION
  Report Type: 
  Country: US (occurrence: US)
  Receive Date: 20120930
  Receipt Date: 20121104
  Transmission Date: 20130627
  Serious: No
  Sender: FDA-Public Use
  Company Number: US-ROXANE LABORATORIES, INC.-2012-RO-01853RO

PATIENT
  Sex: Male

DRUGS (1)
  1. METHADONE [Suspect]
     Indication: PAIN
     Dosage: 60 mg
     Route: 048
     Dates: start: 201111, end: 20120831

REACTIONS (5)
  - Drug ineffective [Unknown]
  - Pruritus [Recovered/Resolved]
  - Oedema peripheral [Recovered/Resolved]
  - Withdrawal syndrome [Unknown]
  - Product quality issue [Unknown]
